FAERS Safety Report 10046876 (Version 1)
Quarter: 2014Q1

REPORT INFORMATION
  Report Type: Spontaneous
  Country: BR (occurrence: BR)
  Receive Date: 20140331
  Receipt Date: 20140331
  Transmission Date: 20141002
  Serious: Yes (Other)
  Sender: FDA-Public Use
  Company Number: BR-SA-2014SA035102

PATIENT
  Sex: Male
  Weight: 102 kg

DRUGS (6)
  1. LANTUS [Suspect]
     Indication: TYPE 2 DIABETES MELLITUS
     Dosage: CARTRIDGE
     Route: 058
     Dates: start: 2009
  2. AUTOPEN 24 [Concomitant]
     Indication: DEVICE THERAPY
     Dates: start: 2009
  3. DIOVAN [Concomitant]
     Indication: HYPERTENSION
     Route: 048
  4. ATORVASTATIN CALCIUM [Concomitant]
     Indication: BLOOD CHOLESTEROL ABNORMAL
     Route: 048
  5. ZYLORIC [Concomitant]
     Indication: BLOOD URIC ACID ABNORMAL
     Route: 048
  6. NOVORAPID [Concomitant]
     Indication: TYPE 2 DIABETES MELLITUS
     Route: 058

REACTIONS (4)
  - Renal disorder [Recovering/Resolving]
  - Urine output decreased [Recovering/Resolving]
  - Gastritis [Recovering/Resolving]
  - Off label use [Unknown]
